FAERS Safety Report 6258073-X (Version None)
Quarter: 2009Q3

REPORT INFORMATION
  Report Type: 
  Country: None (occurrence: None)
  Receive Date: 20090707
  Receipt Date: 20090626
  Transmission Date: 20100115
  Serious: Yes (Other)
  Sender: FDA-Public Use
  Company Number: PHEH2009US06889

PATIENT
  Age: 58 Year
  Sex: Male

DRUGS (5)
  1. TEKTURNA [Suspect]
     Indication: HYPERTENSION
     Dosage: 150 MG, UNK
  2. TEKTURNA [Suspect]
     Dosage: 300 MG, QD
     Route: 048
     Dates: start: 20090401, end: 20090401
  3. AMLODIPINE [Concomitant]
     Dosage: 10, UNK
  4. DIOVAN [Concomitant]
     Dosage: 320, UNK
  5. HYDROCHLOROTHIAZIDE [Concomitant]
     Dosage: 25. UNK

REACTIONS (1)
  - ASTHMA [None]
